FAERS Safety Report 6809238-7 (Version None)
Quarter: 2010Q2

REPORT INFORMATION
  Report Type: 
  Country: None (occurrence: None)
  Receive Date: 20100630
  Receipt Date: 20100115
  Transmission Date: 20101027
  Serious: Yes (Other)
  Sender: FDA-Public Use
  Company Number: US-ASTRAZENECA-2009UW19951

PATIENT
  Age: 27 Year
  Sex: Female
  Weight: 49.9 kg

DRUGS (2)
  1. SEROQUEL [Suspect]
     Indication: BIPOLAR DISORDER
     Route: 048
     Dates: start: 20020101, end: 20080101
  2. SEROQUEL [Suspect]
     Route: 048
     Dates: start: 20070101

REACTIONS (3)
  - BLINDNESS [None]
  - DIABETES MELLITUS [None]
  - TYPE 1 DIABETES MELLITUS [None]
